FAERS Safety Report 5012223-1 (Version None)
Quarter: 2006Q2

REPORT INFORMATION
  Report Type: 
  Country: None (occurrence: None)
  Receive Date: 20060525
  Receipt Date: 20060525
  Transmission Date: 20061013
  Serious: Yes (Hospitalization)
  Sender: FDA-Public Use
  Company Number: None

PATIENT
  Age: 84 Year
  Sex: Male
  Weight: 95.2554 kg

DRUGS (7)
  1. COUMADIN [Suspect]
     Indication: ANTICOAGULANT THERAPY
     Dosage: 3 MG PO HS
     Route: 048
     Dates: start: 20060305, end: 20060318
  2. ZOCOR [Concomitant]
  3. LASIX [Concomitant]
  4. DIGOXIN [Concomitant]
  5. SPIRONOLACTONE [Concomitant]
  6. INSULIN [Concomitant]
  7. IMDUR [Concomitant]

REACTIONS (3)
  - EPISTAXIS [None]
  - HAEMATURIA [None]
  - MOUTH HAEMORRHAGE [None]
